FAERS Safety Report 6977155-8 (Version None)
Quarter: 2010Q3

REPORT INFORMATION
  Report Type: 
  Country: None (occurrence: None)
  Receive Date: 20100910
  Receipt Date: 20100901
  Transmission Date: 20110219
  Serious: Yes (Other)
  Sender: FDA-Public Use
  Company Number: GB-JNJCH-2010011218

PATIENT
  Age: 19 Year
  Sex: Female

DRUGS (7)
  1. PHENYLEPHRINE HCL [Suspect]
     Indication: INTENTIONAL OVERDOSE
     Dosage: TEXT:UNKNOWN
     Route: 048
     Dates: start: 20100413, end: 20100413
  2. AMOXICILLIN [Suspect]
     Indication: INTENTIONAL OVERDOSE
     Dosage: TEXT:UNKNOWN
     Route: 048
     Dates: start: 20100413, end: 20100413
  3. DO-DO ^COB^ [Suspect]
     Indication: INTENTIONAL OVERDOSE
     Dosage: TEXT:UNKNOWN
     Route: 048
     Dates: start: 20100413, end: 20100413
  4. NYTOL [Suspect]
     Indication: INTENTIONAL OVERDOSE
     Dosage: TEXT:UNKNOWN
     Route: 048
     Dates: start: 20100413, end: 20100413
  5. ACETAMINOPHEN [Suspect]
     Indication: INTENTIONAL OVERDOSE
     Dosage: TEXT:UNKNOWN
     Route: 048
     Dates: start: 20100413, end: 20100413
  6. THEOPHYLLINE [Suspect]
     Indication: INTENTIONAL OVERDOSE
     Dosage: TEXT:UNKNOWN
     Route: 048
     Dates: start: 20100413, end: 20100413
  7. ZOPICLONE [Suspect]
     Indication: INTENTIONAL OVERDOSE
     Dosage: TEXT:71.25MG
     Route: 048
     Dates: start: 20100413, end: 20100413

REACTIONS (4)
  - BLOOD CREATINE PHOSPHOKINASE INCREASED [None]
  - INTENTIONAL OVERDOSE [None]
  - MYALGIA [None]
  - RHABDOMYOLYSIS [None]
